FAERS Safety Report 10143068 (Version 1)
Quarter: 2014Q2

REPORT INFORMATION
  Report Type: Report from Study
  Country: US (occurrence: US)
  Receive Date: 20140430
  Receipt Date: 20140430
  Transmission Date: 20141212
  Serious: Yes (Other)
  Sender: FDA-Public Use
  Company Number: US-ABBVIE-14P-163-1228590-00

PATIENT
  Age: 52 Year
  Sex: Male
  Weight: 99.88 kg

DRUGS (3)
  1. HUMIRA [Suspect]
     Indication: RHEUMATOID ARTHRITIS
     Route: 058
     Dates: start: 201309
  2. HYDROCODONE [Concomitant]
     Indication: PAIN
  3. UNKNOWN EYE DROPS [Concomitant]
     Indication: CORNEAL TRANSPLANT
     Dates: start: 201306

REACTIONS (1)
  - Arthralgia [Not Recovered/Not Resolved]
